FAERS Safety Report 4654730-7 (Version None)
Quarter: 2005Q2

REPORT INFORMATION
  Report Type: 
  Country: None (occurrence: None)
  Receive Date: 20050504
  Receipt Date: 20050426
  Transmission Date: 20051028
  Serious: Yes (Other)
  Sender: FDA-Public Use
  Company Number: 800358

PATIENT
  Sex: 0

DRUGS (1)
  1. EXTRANEAL [Suspect]

REACTIONS (4)
  - ADVERSE DRUG REACTION [None]
  - BLOOD GLUCOSE ABNORMAL [None]
  - DEVICE FAILURE [None]
  - LABORATORY TEST INTERFERENCE [None]
